FAERS Safety Report 19573288 (Version 1)
Quarter: 2021Q3

REPORT INFORMATION
  Report Type: Spontaneous
  Country: MX (occurrence: MX)
  Receive Date: 20210717
  Receipt Date: 20210717
  Transmission Date: 20211014
  Serious: Yes (Other)
  Sender: FDA-Public Use
  Company Number: MX-ALVOGEN-2021-ALVOGEN-117222

PATIENT
  Age: 19930 Day
  Sex: Male
  Weight: 71 kg

DRUGS (3)
  1. GALVUS MET [Concomitant]
     Active Substance: METFORMIN HYDROCHLORIDE\VILDAGLIPTIN
     Indication: BLOOD GLUCOSE ABNORMAL
     Dosage: 50/850 MG, 1 DOSAGE FORM (DF), TWICE A DAY
     Route: 048
     Dates: start: 201505
  2. ZESTORETIC [Suspect]
     Active Substance: HYDROCHLOROTHIAZIDE\LISINOPRIL
     Indication: BLOOD PRESSURE MEASUREMENT
     Route: 048
  3. MELOXICAN [Concomitant]
     Active Substance: MELOXICAM
     Indication: ANTIINFLAMMATORY THERAPY
     Route: 048
     Dates: start: 20210630

REACTIONS (4)
  - Fall [Unknown]
  - Injury [Unknown]
  - Blood pressure increased [Unknown]
  - Blood glucose increased [Unknown]

NARRATIVE: CASE EVENT DATE: 20210605
